FAERS Safety Report 14972054 (Version 1)
Quarter: 2018Q2

REPORT INFORMATION
  Report Type: Report from Study
  Country: None (occurrence: US)
  Receive Date: 20180605
  Receipt Date: 20180605
  Transmission Date: 20180711
  Serious: Yes (Other)
  Sender: FDA-Public Use
  Company Number: US-ABBVIE-18K-163-2372788-00

PATIENT
  Age: 69 Year
  Sex: Female

DRUGS (1)
  1. HUMIRA [Suspect]
     Active Substance: ADALIMUMAB
     Indication: RHEUMATOID ARTHRITIS
     Route: 058

REACTIONS (10)
  - Carpal tunnel syndrome [Unknown]
  - Blood triglycerides increased [Unknown]
  - Burning sensation [Unknown]
  - Abdominal distension [Unknown]
  - Knee arthroplasty [Unknown]
  - Nausea [Unknown]
  - Diabetes mellitus [Unknown]
  - Dysphagia [Unknown]
  - Hiatus hernia [Unknown]
  - Shoulder arthroplasty [Unknown]

NARRATIVE: CASE EVENT DATE: 2018
